FAERS Safety Report 5978469-0 (Version None)
Quarter: 2008Q4

REPORT INFORMATION
  Report Type: 
  Country: None (occurrence: None)
  Receive Date: 20081125
  Receipt Date: 20081118
  Transmission Date: 20090506
  Serious: Yes (Death, Life-Threatening)
  Sender: FDA-Public Use
  Company Number: 1000001320

PATIENT
  Age: 36 Year
  Sex: Female

DRUGS (2)
  1. DINOPROSTONE (DINOPROSTONE) [Suspect]
     Indication: CERVIX DISORDER
     Dosage: 10 MG (10 MG, ONCE), VAGINAL
     Route: 067
     Dates: start: 20070803, end: 20070803
  2. DINOPROSTONE (DINOPROSTONE) [Suspect]
     Indication: LABOUR INDUCTION
     Dosage: 10 MG (10 MG, ONCE), VAGINAL
     Route: 067
     Dates: start: 20070803, end: 20070803

REACTIONS (9)
  - AMNIOCENTESIS ABNORMAL [None]
  - CARDIAC ARREST [None]
  - CARDIO-RESPIRATORY ARREST [None]
  - DISSEMINATED INTRAVASCULAR COAGULATION [None]
  - DRUG EXPOSURE DURING PREGNANCY [None]
  - HYPOCOAGULABLE STATE [None]
  - HYPOTENSION [None]
  - POSTPARTUM HAEMORRHAGE [None]
  - UTERINE ATONY [None]
